FAERS Safety Report 7224939-7 (Version None)
Quarter: 2011Q1

REPORT INFORMATION
  Report Type: 
  Country: None (occurrence: None)
  Receive Date: 20110113
  Receipt Date: 20110107
  Transmission Date: 20110831
  Serious: Yes (Life-Threatening, Hospitalization, Other)
  Sender: FDA-Public Use
  Company Number: US-PFIZER INC-2011005056

PATIENT
  Sex: Female

DRUGS (6)
  1. BEXTRA [Suspect]
     Dosage: UNK
     Route: 048
  2. LIPITOR [Concomitant]
     Dosage: UNK
     Route: 048
  3. DETROL [Concomitant]
     Dosage: UNK
     Route: 048
  4. PLAVIX [Concomitant]
     Dosage: UNK
     Route: 048
  5. ZYRTEC [Concomitant]
     Dosage: UNK
     Route: 048
  6. CELEBREX [Suspect]
     Dosage: 200 MG, UNK
     Route: 048

REACTIONS (10)
  - FATIGUE [None]
  - DIZZINESS [None]
  - BLOOD PRESSURE INCREASED [None]
  - CEREBROVASCULAR ACCIDENT [None]
  - MYOCARDIAL INFARCTION [None]
  - SOMNOLENCE [None]
  - HEADACHE [None]
  - DRUG INEFFECTIVE [None]
  - PARALYSIS [None]
  - PAIN IN EXTREMITY [None]
